FAERS Safety Report 16068566 (Version 14)
Quarter: 2023Q4

REPORT INFORMATION
  Report Type: Report from Study
  Country: IL (occurrence: IL)
  Receive Date: 20190313
  Receipt Date: 20231107
  Transmission Date: 20240110
  Serious: Yes (Hospitalization)
  Sender: FDA-Public Use
  Company Number: IL-ELI_LILLY_AND_COMPANY-IL201903003891

PATIENT
  Age: 68 Year
  Sex: Female
  Weight: 68 kg

DRUGS (24)
  1. PEMETREXED [Suspect]
     Active Substance: PEMETREXED
     Indication: Non-small cell lung cancer metastatic
     Dosage: 500 MG/M2, CYCLICAL Q3W
     Route: 042
     Dates: start: 20181031, end: 20181031
  2. CARBOPLATIN [Concomitant]
     Active Substance: CARBOPLATIN
     Indication: Non-small cell lung cancer metastatic
     Dosage: UNK, AUC 5MG/ML/MIN CYCLICAL Q3W
     Route: 042
     Dates: start: 20181031, end: 20181031
  3. FENTANYL [Concomitant]
     Active Substance: FENTANYL\FENTANYL CITRATE
     Indication: Pain
     Dosage: 25 UG, OTHER
     Route: 058
     Dates: start: 20181116, end: 20181119
  4. FOLIC ACID [Concomitant]
     Active Substance: FOLIC ACID
     Indication: Product used for unknown indication
     Dosage: 400 UG, UNKNOWN
     Route: 065
     Dates: start: 20181023, end: 20181101
  5. DEXAMETHASONE [Concomitant]
     Active Substance: DEXAMETHASONE
     Indication: Product used for unknown indication
     Dosage: 2 MG, UNKNOWN
     Route: 065
     Dates: start: 20181030, end: 20181101
  6. CYANOCOBALAMIN [Concomitant]
     Active Substance: CYANOCOBALAMIN
     Indication: Product used for unknown indication
     Dosage: 1000 UG, UNKNOWN
     Route: 065
     Dates: start: 20181023, end: 20181023
  7. DEXACORT [DEXAMETHASONE SODIUM PHOSPHATE] [Concomitant]
     Indication: Product used for unknown indication
     Dosage: 16 MG, UNKNOWN
     Route: 042
     Dates: start: 20181031, end: 20181031
  8. PALONOSETRON HYDROCHLORIDE [Concomitant]
     Active Substance: PALONOSETRON HYDROCHLORIDE
     Indication: Product used for unknown indication
     Dosage: 0.25 MG, UNKNOWN
     Route: 042
     Dates: start: 20181031, end: 20181031
  9. SOLGAR CALCIUM CITRATE WITH VITAMIN D3 [Concomitant]
     Indication: Product used for unknown indication
     Dosage: 1 DOSAGE FORM, UNKNOWN
     Route: 065
     Dates: start: 201809, end: 20181203
  10. MAGNESIUM [Concomitant]
     Active Substance: MAGNESIUM
     Indication: Product used for unknown indication
     Dosage: 100 MG, UNKNOWN
     Route: 065
     Dates: start: 20181101, end: 20181101
  11. ESCITALOPRAM [Concomitant]
     Active Substance: ESCITALOPRAM OXALATE
     Indication: Product used for unknown indication
     Dosage: 10 MG, UNKNOWN
     Route: 065
     Dates: start: 20181003, end: 20181130
  12. LINAGLIPTIN [Concomitant]
     Active Substance: LINAGLIPTIN
     Indication: Diabetes mellitus
     Dosage: 2 DOSAGE FORM, UNKNOWN
     Route: 065
     Dates: start: 201101, end: 20181101
  13. LEVOTHYROXINE [Concomitant]
     Active Substance: LEVOTHYROXINE
     Indication: Product used for unknown indication
     Dosage: 100 UG, UNKNOWN
     Route: 065
     Dates: start: 198301, end: 20181101
  14. LEVOTHYROXINE [Concomitant]
     Active Substance: LEVOTHYROXINE
     Dosage: 200 UG, UNKNOWN
     Route: 065
     Dates: start: 20181102, end: 20181106
  15. LEVOTHYROXINE [Concomitant]
     Active Substance: LEVOTHYROXINE
     Dosage: 150 UG, UNKNOWN
     Route: 065
     Dates: start: 20181107, end: 20181115
  16. INSULIN GLARGINE [Concomitant]
     Active Substance: INSULIN GLARGINE
     Indication: Product used for unknown indication
     Dosage: 12 INTERNATIONAL UNIT, UNKNOWN
     Dates: start: 20181102, end: 20181102
  17. INSULIN GLARGINE [Concomitant]
     Active Substance: INSULIN GLARGINE
     Dosage: 3 INTERNATIONAL UNIT, UNKNOWN
     Dates: start: 20181102, end: 20181102
  18. APIDRA [Concomitant]
     Active Substance: INSULIN GLULISINE
     Indication: Product used for unknown indication
     Dosage: 2 INTERNATIONAL UNIT, UNKNOWN
     Route: 065
     Dates: start: 20180909, end: 20181101
  19. OMEPRAZOLE [Concomitant]
     Active Substance: OMEPRAZOLE
     Indication: Product used for unknown indication
     Dosage: 20 MG, UNKNOWN
     Route: 065
     Dates: start: 20180909, end: 20181101
  20. OXAZEPAM [Concomitant]
     Active Substance: OXAZEPAM
     Indication: Product used for unknown indication
     Dosage: 10 MG, UNKNOWN
     Dates: start: 20181102, end: 20181126
  21. ATORVASTATIN [Concomitant]
     Active Substance: ATORVASTATIN
     Indication: Product used for unknown indication
     Dosage: 40 MG, UNKNOWN
     Dates: start: 201101, end: 20181104
  22. ENOXAPARIN SODIUM [Concomitant]
     Active Substance: ENOXAPARIN SODIUM
     Indication: Deep vein thrombosis
     Dosage: 80 MG, UNKNOWN
     Dates: start: 201809, end: 20181101
  23. METAMIZOLE [Concomitant]
     Active Substance: METAMIZOLE
     Indication: Fatigue
     Dosage: 500 MG, UNKNOWN
     Route: 065
     Dates: start: 20180909, end: 20181102
  24. LANTUS [Concomitant]
     Active Substance: INSULIN GLARGINE
     Indication: Product used for unknown indication
     Dosage: 3 INTERNATIONAL UNIT, UNKNOWN
     Route: 065
     Dates: start: 20180909, end: 20181101

REACTIONS (4)
  - Dysphagia [Recovered/Resolved]
  - Bacteraemia [Recovered/Resolved]
  - Fatigue [Recovered/Resolved]
  - Vomiting [Recovered/Resolved]

NARRATIVE: CASE EVENT DATE: 20181102
